FAERS Safety Report 6130618-X (Version None)
Quarter: 2009Q1

REPORT INFORMATION
  Report Type: 
  Country: None (occurrence: None)
  Receive Date: 20090323
  Receipt Date: 20090308
  Transmission Date: 20090719
  Serious: Yes (Hospitalization, Other)
  Sender: FDA-Public Use
  Company Number: 2007S1008535

PATIENT
  Age: 57 Year
  Sex: Male
  Weight: 90.7194 kg

DRUGS (16)
  1. PHOSPHOSODA FLAVOR NOT SPECIFIED [Suspect]
     Indication: COLONOSCOPY
     Dosage: 135 ML; TOTAL; PO
     Route: 048
     Dates: start: 20070320, end: 20070320
  2. TORADOL [Concomitant]
  3. DILAUDID [Concomitant]
  4. COMPAZINE [Concomitant]
  5. LEVAQUIN [Concomitant]
  6. BENAZEPRIL HYDROCHLORIDE [Concomitant]
  7. AMITRIPTYLINE [Concomitant]
  8. AMLODIPINE [Concomitant]
  9. ASPIRIN [Concomitant]
  10. CALCIUM WITH VITAMIN D [Concomitant]
  11. CARVEDILOL [Concomitant]
  12. MULTI-VITAMIN [Concomitant]
  13. NAPROXEN [Concomitant]
  14. INHALER [Concomitant]
  15. BYETTA [Concomitant]
  16. HYDROMORPHONE HCL [Concomitant]

REACTIONS (3)
  - ILL-DEFINED DISORDER [None]
  - PYELONEPHRITIS [None]
  - RENAL FAILURE [None]
